FAERS Safety Report 4618292-2 (Version None)
Quarter: 2005Q1

REPORT INFORMATION
  Report Type: 
  Country: None (occurrence: None)
  Receive Date: 20050323
  Receipt Date: 20050310
  Transmission Date: 20050727
  Serious: Yes (Hospitalization, Disabling, Other)
  Sender: FDA-Public Use
  Company Number: 2005_000001

PATIENT
  Age: 47 Year
  Sex: Male

DRUGS (1)
  1. DEPOCYT [Suspect]
     Indication: ACUTE LYMPHOCYTIC LEUKAEMIA
     Dosage: 50 MG; X1; INTRATHECAL
     Route: 037
     Dates: start: 20041208, end: 20041223

REACTIONS (8)
  - ARACHNOIDITIS [None]
  - HEADACHE [None]
  - HYPERHIDROSIS [None]
  - MOVEMENT DISORDER [None]
  - PAPILLOEDEMA [None]
  - TONIC CONVULSION [None]
  - VISION BLURRED [None]
  - VOMITING [None]
